FAERS Safety Report 4684404-8 (Version None)
Quarter: 2005Q2

REPORT INFORMATION
  Report Type: 
  Country: None (occurrence: None)
  Receive Date: 20050531
  Receipt Date: 20041116
  Transmission Date: 20051028
  Serious: Yes (Hospitalization)
  Sender: FDA-Public Use
  Company Number: USA041082188

PATIENT
  Age: 70 Year
  Sex: Female
  Weight: 55 kg

DRUGS (8)
  1. FORTEO [Suspect]
     Indication: OSTEOPOROSIS
     Dosage: 20 UG DAY
     Dates: start: 20040928
  2. ZYPREXA [Suspect]
  3. REMICADE [Concomitant]
  4. PLAQUENIL [Concomitant]
  5. METHOTREXATE [Concomitant]
  6. ATENOLOL [Concomitant]
  7. DEPAKOTE [Concomitant]
  8. NEURONTIN (GABAPENTIN PFIZER) [Concomitant]

REACTIONS (3)
  - BALANCE DISORDER [None]
  - DELIRIUM [None]
  - PYREXIA [None]
